FAERS Safety Report 9678613 (Version 2)
Quarter: 2013Q4

REPORT INFORMATION
  Report Type: Report from Study
  Country: US (occurrence: US)
  Receive Date: 20131108
  Receipt Date: 20131213
  Transmission Date: 20140711
  Serious: Yes (Other)
  Sender: FDA-Public Use
  Company Number: US-JNJFOC-20131100158

PATIENT
  Sex: Female
  Weight: 65.77 kg

DRUGS (7)
  1. REMICADE [Suspect]
     Indication: CROHN^S DISEASE
     Route: 042
     Dates: end: 2007
  2. REMICADE [Suspect]
     Indication: CROHN^S DISEASE
     Route: 042
  3. REMICADE [Suspect]
     Indication: CROHN^S DISEASE
     Route: 042
     Dates: start: 2003
  4. REMICADE [Suspect]
     Indication: CROHN^S DISEASE
     Route: 042
     Dates: start: 2013
  5. REMICADE [Suspect]
     Indication: CROHN^S DISEASE
     Dosage: ONE EVERY 4-5 WEEKS
     Route: 042
     Dates: start: 2009, end: 2013
  6. AZATHIOPRINE [Suspect]
     Indication: CROHN^S DISEASE
     Route: 048
     Dates: start: 200908
  7. AZATHIOPRINE [Suspect]
     Indication: CROHN^S DISEASE
     Route: 048

REACTIONS (8)
  - Pneumonia [Unknown]
  - Clostridium difficile infection [Recovered/Resolved]
  - Asthma [Not Recovered/Not Resolved]
  - Neutropenia [Recovered/Resolved]
  - Bronchitis [Unknown]
  - Sinusitis [Recovered/Resolved]
  - Crohn^s disease [Recovered/Resolved]
  - Exposure during pregnancy [Recovered/Resolved]
